FAERS Safety Report 6334449-7 (Version None)
Quarter: 2009Q3

REPORT INFORMATION
  Report Type: 
  Country: None (occurrence: None)
  Receive Date: 20090831
  Receipt Date: 20071109
  Transmission Date: 20100115
  Serious: Yes (Other)
  Sender: FDA-Public Use
  Company Number: US-ASTRAZENECA-2007UW13940

PATIENT
  Age: 16200 Day
  Sex: Male
  Weight: 152.4 kg

DRUGS (13)
  1. SEROQUEL [Suspect]
     Indication: DEPRESSION
     Dosage: 100MG-400MG
     Route: 048
     Dates: start: 20020807, end: 20061114
  2. SEROQUEL [Suspect]
     Route: 048
     Dates: start: 20020807, end: 20020907
  3. SEROQUEL [Suspect]
     Route: 048
     Dates: start: 20030210, end: 20030712
  4. SEROQUEL [Suspect]
     Dosage: 300-600 MG, EVERY DAY
     Route: 048
     Dates: start: 20031020, end: 20060919
  5. RISPERDAL [Concomitant]
     Dates: start: 20001211, end: 20010518
  6. DEPAKOTE [Concomitant]
     Dosage: 250MG-1500MG
     Route: 048
     Dates: start: 20010119
  7. PROVIGIL [Concomitant]
     Dates: start: 20010606
  8. DILANTIN [Concomitant]
     Dates: start: 20010808
  9. EFFEXOR XR [Concomitant]
     Route: 048
     Dates: start: 20020807
  10. LESCOL XL [Concomitant]
     Route: 048
     Dates: start: 20050101
  11. COREG [Concomitant]
     Dosage: 3.125MG-25MG
     Dates: start: 20050607
  12. FLEXERIL [Concomitant]
     Route: 048
     Dates: start: 20050607
  13. ZETIA [Concomitant]
     Dates: start: 20050722

REACTIONS (5)
  - AUTONOMIC NEUROPATHY [None]
  - DIABETES MELLITUS [None]
  - DIABETES MELLITUS INADEQUATE CONTROL [None]
  - DIABETIC NEUROPATHY [None]
  - TYPE 2 DIABETES MELLITUS [None]
